FAERS Safety Report 4781202-1 (Version None)
Quarter: 2005Q3

REPORT INFORMATION
  Report Type: 
  Country: None (occurrence: None)
  Receive Date: 20050914
  Receipt Date: 20050105
  Transmission Date: 20060218
  Serious: Yes (Hospitalization)
  Sender: FDA-Public Use
  Company Number: 163-20785-05010065

PATIENT
  Age: 54 Year
  Sex: Male

DRUGS (7)
  1. THALOMID [Suspect]
     Indication: MULTIPLE MYELOMA
     Dosage: 300 MG, QD, ORAL; SEE IMAGE
     Route: 048
     Dates: start: 20040117, end: 20040220
  2. THALOMID [Suspect]
     Indication: MULTIPLE MYELOMA
     Dosage: 300 MG, QD, ORAL; SEE IMAGE
     Route: 048
     Dates: start: 20040221, end: 20040316
  3. THALOMID [Suspect]
     Indication: MULTIPLE MYELOMA
     Dosage: 300 MG, QD, ORAL; SEE IMAGE
     Route: 048
     Dates: start: 20040301
  4. DEXAMETHASONE [Suspect]
     Indication: MULTIPLE MYELOMA
     Dosage: 40 MG, QD, ORAL
     Route: 048
     Dates: start: 20040220, end: 20040223
  5. CYCLOPHOSPHAMIDE [Suspect]
     Indication: MULTIPLE MYELOMA
     Dosage: 800 MG, QD, INTRAVENOUS
     Route: 042
     Dates: start: 20040220, end: 20040223
  6. ETOPOSIDE [Suspect]
     Indication: MULTIPLE MYELOMA
     Dosage: 80 MG, QD, INTRAVENOUS
     Route: 042
     Dates: start: 20040220, end: 20040223
  7. CISPLATIN [Suspect]
     Indication: MULTIPLE MYELOMA
     Dosage: 30 MG, QD, INTRAVENOUS
     Route: 042
     Dates: start: 20040220, end: 20040223

REACTIONS (3)
  - FATIGUE [None]
  - HYPOTENSION [None]
  - SYNCOPE [None]
